FAERS Safety Report 19844656 (Version 2)
Quarter: 2021Q4

REPORT INFORMATION
  Report Type: Spontaneous
  Country: DE (occurrence: AT)
  Receive Date: 20210917
  Receipt Date: 20211116
  Transmission Date: 20220303
  Serious: Yes (Other)
  Sender: FDA-Public Use
  Company Number: DE-NOVOPROD-845146

PATIENT
  Age: 62 Year
  Sex: Male

DRUGS (3)
  1. FIASP [Suspect]
     Active Substance: INSULIN ASPART
     Indication: Type 1 diabetes mellitus
     Dosage: 40.00 IU, QD(15-12-13)
     Route: 058
     Dates: start: 20210819, end: 20210903
  2. TOUJEO [Concomitant]
     Active Substance: INSULIN GLARGINE
     Dosage: UNK
     Route: 058
  3. SILODOSIN [Concomitant]
     Active Substance: SILODOSIN
     Indication: Benign prostatic hyperplasia
     Dosage: 8 MG, QD
     Route: 048
     Dates: start: 201910

REACTIONS (7)
  - Micturition urgency [Recovered/Resolved]
  - Blood glucose increased [Recovered/Resolved]
  - Device issue [Unknown]
  - Device leakage [Unknown]
  - Urinary retention [Recovered/Resolved]
  - Drug ineffective [Unknown]
  - Drug delivery system issue [Unknown]

NARRATIVE: CASE EVENT DATE: 20210820
